FAERS Safety Report 4938242-9 (Version None)
Quarter: 2006Q1

REPORT INFORMATION
  Report Type: 
  Country: None (occurrence: None)
  Receive Date: 20060309
  Receipt Date: 20060201
  Transmission Date: 20060701
  Serious: Yes (Other)
  Sender: FDA-Public Use
  Company Number: JP-ROCHE-435062

PATIENT
  Age: 10 Year
  Sex: Male
  Weight: 42 kg

DRUGS (8)
  1. TAMIFLU [Suspect]
     Route: 048
     Dates: start: 20060130, end: 20060201
  2. ANTIHISTAMINES [Concomitant]
     Route: 065
  3. ZESULAN [Concomitant]
     Route: 048
     Dates: start: 20060130, end: 20060201
  4. MUCOSOLVAN [Concomitant]
     Route: 048
     Dates: start: 20060130, end: 20060201
  5. MUCODYNE [Concomitant]
     Route: 048
     Dates: start: 20060130, end: 20060201
  6. METHIONINE [Concomitant]
     Dates: start: 20060130, end: 20060201
  7. PYRINAZIN [Concomitant]
     Route: 048
     Dates: start: 20060130, end: 20060201
  8. HOKUNALIN [Concomitant]
     Dosage: DOSE FORM REPORTED AS TAPE.
     Route: 061

REACTIONS (1)
  - HYPOTHERMIA [None]
